FAERS Safety Report 5563946-7 (Version None)
Quarter: 2007Q4

REPORT INFORMATION
  Report Type: 
  Country: None (occurrence: None)
  Receive Date: 20071217
  Receipt Date: 20071023
  Transmission Date: 20080405
  Serious: Yes (Disabling, Other)
  Sender: FDA-Public Use
  Company Number: US-PURDUE-USA_2007_0030211

PATIENT
  Sex: Female

DRUGS (12)
  1. XANAX [Concomitant]
     Indication: DRUG USE FOR UNKNOWN INDICATION
     Dosage: .5 MG, DAILY
     Route: 048
  2. AMBIEN [Concomitant]
     Indication: DRUG USE FOR UNKNOWN INDICATION
     Dosage: 12.5 MG, DAILY
     Route: 048
  3. CELEBREX [Concomitant]
     Indication: DRUG USE FOR UNKNOWN INDICATION
     Dosage: 200 MG, DAILY
     Route: 048
  4. METFORMIN HCL [Concomitant]
     Indication: DRUG USE FOR UNKNOWN INDICATION
     Dosage: 500 MG, DAILY
     Route: 048
  5. HYDROCODONE BITARTRATE [Concomitant]
     Indication: DRUG USE FOR UNKNOWN INDICATION
     Dosage: 650 MG, TID
     Route: 048
  6. ZYRTEC [Concomitant]
     Indication: DRUG USE FOR UNKNOWN INDICATION
     Dosage: 10 MG, DAILY
     Route: 048
  7. UNIPHYL TABLETS [Concomitant]
     Indication: DRUG USE FOR UNKNOWN INDICATION
     Dosage: 400 MG, DAILY
     Route: 048
  8. AVANDIA [Concomitant]
     Indication: DRUG USE FOR UNKNOWN INDICATION
     Dosage: 4 MG, DAILY
     Route: 048
  9. LESCOL [Concomitant]
     Indication: DRUG USE FOR UNKNOWN INDICATION
     Dosage: 80 MG, DAILY
     Route: 048
  10. RISPERDAL [Concomitant]
     Indication: DRUG USE FOR UNKNOWN INDICATION
     Dosage: 1 MG, NOCTE
     Route: 048
  11. FEXOFENADINE [Concomitant]
     Indication: DRUG USE FOR UNKNOWN INDICATION
     Dosage: 180 MG, DAILY
     Route: 048
  12. OXYCONTIN [Suspect]
     Indication: PAIN
     Dosage: 10 MG, BID
     Route: 048
     Dates: start: 20000307, end: 20010427

REACTIONS (8)
  - BACK DISORDER [None]
  - CONVULSION [None]
  - DISABILITY [None]
  - DRUG WITHDRAWAL SYNDROME [None]
  - LUNG DISORDER [None]
  - MUSCULOSKELETAL DISORDER [None]
  - NERVOUS SYSTEM DISORDER [None]
  - PAIN [None]
